FAERS Safety Report 9805584 (Version 1)
Quarter: 2014Q1

REPORT INFORMATION
  Report Type: Spontaneous
  Country: US (occurrence: None)
  Receive Date: 20140107
  Receipt Date: 20140107
  Transmission Date: 20141002
  Serious: Yes (Death, Hospitalization)
  Sender: FDA-Public Use
  Company Number: IPC201312-000542

PATIENT
  Age: 80 Year
  Sex: Male

DRUGS (17)
  1. ALLOPURINOL (ALLOPURINOL) (ALLOPURINOL) [Suspect]
     Indication: GOUT
     Route: 048
  2. HYDROCHLOROTHIAZIDE (HYDROCHLOROTHIAZIDE) (HYDROCHLOROTHIAZIDE) [Suspect]
  3. AMLODIPINE BESILATE (AMLODIPINE BESILATE) (AMLODIPINE BESILATE) [Suspect]
     Route: 048
  4. TRIAMTERENE (TRIAMTERENE) (TRIAMTERENE) [Suspect]
  5. FLUTICASONE (FLUTICASONE) (FLUTICASONE) [Suspect]
     Route: 055
  6. MONTELUKAST (MONTELUKAST) (MONTELUKAST) [Suspect]
     Route: 048
  7. IRBESARTAN (IRBESARTAN) (IRBESARTAN) [Suspect]
     Route: 048
  8. GLYBURIDE (GLYBURIDE) (GLYBURIDE) [Suspect]
     Route: 048
  9. ALBUTEROL (ALBUTEROL) (ALBUTEROL) [Suspect]
     Dosage: 2 PUFFS EVERY 6 HOURS
  10. TERAZOSIN (TERAZOSIN) (TERAZOSIN) [Suspect]
     Route: 048
  11. SIMVASTATIN (SIMVASTATIN) (SIMVASTATIN) [Suspect]
     Route: 048
  12. AZELASTINE (AZELASTINE) (AZELASTINE) [Suspect]
     Dosage: SPRAY IN BOTH NOSTRILS
     Route: 055
  13. MECLIZINE (MECLIZINE) (MECLIZINE) [Suspect]
     Dosage: DAILY PRN
     Route: 048
  14. FEXOFENADINE (FEXOFENADINE) (FEXOFENADINE) [Suspect]
     Route: 048
  15. CYCLOBENZAPRIN (CYCLOBENZAPRINE) (CYCLOBENZAPRINE) [Suspect]
  16. HYDROCODONE/ACETAMINOPHEN (HYDROCODONE, ACETAMINOPHEN) (HYDROCODONE, ACETAMINOPHEN) [Suspect]
     Dosage: 2 TABS DAILY PRN
     Route: 048
  17. FLUTICASONE PROPIONATE (FLUTICASONE PROPIONATE) (FLUTICASONE PROPIONATE) [Suspect]
     Dosage: DAILY PRN

REACTIONS (13)
  - Drug reaction with eosinophilia and systemic symptoms [None]
  - Dysuria [None]
  - Cerebrovascular accident [None]
  - Hepatitis [None]
  - Respiratory arrest [None]
  - Shock [None]
  - Ascites [None]
  - Left ventricular hypertrophy [None]
  - Renal cyst [None]
  - Renal failure acute [None]
  - Atelectasis [None]
  - Vasculitis [None]
  - Eosinophilia [None]
